FAERS Safety Report 8472522-8 (Version None)
Quarter: 2012Q2

REPORT INFORMATION
  Report Type: 
  Country: None (occurrence: None)
  Receive Date: 20120627
  Receipt Date: 20120109
  Transmission Date: 20120825
  Serious: No
  Sender: FDA-Public Use
  Company Number: US-AMGEN-USASP2012001602

PATIENT
  Age: 52 Year
  Sex: Female
  Weight: 73.9 kg

DRUGS (6)
  1. TELAPREVIR [Suspect]
     Indication: HEPATITIS C
     Dosage: 750 MG, Q8H
     Route: 048
     Dates: start: 20111115
  2. SYNTHROID [Concomitant]
     Dosage: UNK
     Dates: start: 20111115
  3. CALCIUM CARBONATE [Concomitant]
     Dosage: UNK
     Dates: start: 20111115
  4. PEGASYS [Concomitant]
     Dosage: 180 MG, QWK
     Route: 058
     Dates: start: 20111115
  5. RIBAVIRIN [Concomitant]
     Dosage: 600 MG, BID
     Route: 048
     Dates: start: 20111115
  6. PROCRIT [Suspect]
     Indication: PRODUCT USED FOR UNKNOWN INDICATION
     Dosage: UNK
     Route: 058
     Dates: start: 20111115

REACTIONS (1)
  - NAUSEA [None]
